FAERS Safety Report 6599084-4 (Version None)
Quarter: 2010Q1

REPORT INFORMATION
  Report Type: 
  Country: None (occurrence: None)
  Receive Date: 20100224
  Receipt Date: 20090826
  Transmission Date: 20100710
  Serious: No
  Sender: FDA-Public Use
  Company Number: US-BRISTOL-MYERS SQUIBB COMPANY-14756027

PATIENT
  Age: 65 Year
  Sex: Female
  Weight: 81 kg

DRUGS (8)
  1. GLUCOPHAGE [Suspect]
  2. FERROUS SULFATE TAB [Concomitant]
  3. DESIPRAMINE [Concomitant]
  4. AMBIEN [Concomitant]
  5. GABAPENTIN [Concomitant]
  6. PANTOPRAZOLE [Concomitant]
  7. ULTRAM [Concomitant]
  8. LEVOTHYROXINE SODIUM [Concomitant]

REACTIONS (4)
  - BLOOD GLUCOSE DECREASED [None]
  - FATIGUE [None]
  - HYPERHIDROSIS [None]
  - MALAISE [None]
